FAERS Safety Report 14687609 (Version 2)
Quarter: 2018Q2

REPORT INFORMATION
  Report Type: Spontaneous
  Country: US (occurrence: US)
  Receive Date: 20180328
  Receipt Date: 20180418
  Transmission Date: 20180711
  Serious: No
  Sender: FDA-Public Use
  Company Number: US-009507513-1803USA010583

PATIENT
  Sex: Male

DRUGS (1)
  1. KEYTRUDA [Suspect]
     Active Substance: PEMBROLIZUMAB
     Dosage: UNK
     Dates: start: 201606

REACTIONS (4)
  - Weight decreased [Unknown]
  - Prostatitis [Unknown]
  - Pruritus [Unknown]
  - Dysgeusia [Unknown]

NARRATIVE: CASE EVENT DATE: 201606
